FAERS Safety Report 7449671-6 (Version None)
Quarter: 2011Q2

REPORT INFORMATION
  Report Type: 
  Country: None (occurrence: None)
  Receive Date: 20110421
  Receipt Date: 20110330
  Transmission Date: 20111010
  Serious: Yes (Hospitalization, Other)
  Sender: FDA-Public Use
  Company Number: 2011AP000214

PATIENT
  Age: 80 Year
  Sex: Female

DRUGS (7)
  1. AMLODIPINE MALEATE (AMLODIPINE MALEATE) [Concomitant]
  2. OMEPRAZOLE [Suspect]
     Indication: GASTROOESOPHAGEAL REFLUX DISEASE
     Dosage: 40 MG;QD
  3. METFORMINE HCL (METFORMIN HYDROCHLORIDE) [Concomitant]
  4. FURPSEMIDE (FUROSEMIDE) [Concomitant]
  5. METOPROLOL (METOPROLOL) [Concomitant]
  6. ATORVASTATIN [Concomitant]
  7. CARBASALAATCALCIUM (CARBASALATE CALCIUM) [Concomitant]

REACTIONS (8)
  - HYPOKALAEMIA [None]
  - HYPOMAGNESAEMIA [None]
  - HYPOCALCAEMIA [None]
  - DECREASED APPETITE [None]
  - MUSCLE SPASMS [None]
  - NOCTURNAL DYSPNOEA [None]
  - NAUSEA [None]
  - DIARRHOEA [None]
